FAERS Safety Report 21921300 (Version 1)
Quarter: 2023Q1

REPORT INFORMATION
  Report Type: Spontaneous
  Country: US (occurrence: US)
  Receive Date: 20230127
  Receipt Date: 20230127
  Transmission Date: 20230418
  Serious: No
  Sender: FDA-Public Use
  Company Number: US-ENDO PHARMACEUTICALS INC-2022-006661

PATIENT
  Age: 42 Year
  Sex: Female
  Weight: 56.689 kg

DRUGS (3)
  1. QWO [Suspect]
     Active Substance: COLLAGENASE CLOSTRIDIUM HISTOLYTICUM-AAES
     Indication: Cellulite
     Dosage: 1.84 MG, UNKNOWN (TREATMENT ONE)
     Route: 065
     Dates: start: 20220211
  2. QWO [Suspect]
     Active Substance: COLLAGENASE CLOSTRIDIUM HISTOLYTICUM-AAES
     Dosage: 1.84 MG, UNKNOWN (TREATMENT TWO)
     Route: 065
     Dates: start: 20220304
  3. QWO [Suspect]
     Active Substance: COLLAGENASE CLOSTRIDIUM HISTOLYTICUM-AAES
     Dosage: 1.84 MG, UNKNOWN (TREATMENT THREE)
     Route: 065
     Dates: start: 20220401

REACTIONS (3)
  - Skin discolouration [Unknown]
  - Contusion [Not Recovered/Not Resolved]
  - Inappropriate schedule of product administration [Unknown]

NARRATIVE: CASE EVENT DATE: 20220201
